FAERS Safety Report 8242166-1 (Version None)
Quarter: 2012Q1

REPORT INFORMATION
  Report Type: 
  Country: None (occurrence: None)
  Receive Date: 20120314
  Receipt Date: 20110517
  Transmission Date: 20120608
  Serious: No
  Sender: FDA-Public Use
  Company Number: PHHY2011US42387

PATIENT
  Sex: Male

DRUGS (4)
  1. FANAPT [Suspect]
     Dosage: 2 MG, BID, ORAL
     Route: 048
     Dates: start: 20110427, end: 20110510
  2. CLONAZEPAM [Concomitant]
  3. LEXAPRO [Concomitant]
  4. LITHIUM CARBONATE [Concomitant]

REACTIONS (1)
  - OEDEMA PERIPHERAL [None]
